FAERS Safety Report 7175916-6 (Version None)
Quarter: 2010Q4

REPORT INFORMATION
  Report Type: 
  Country: None (occurrence: None)
  Receive Date: 20101220
  Receipt Date: 20101209
  Transmission Date: 20110411
  Serious: Yes (Hospitalization)
  Sender: FDA-Public Use
  Company Number: US-BIOGENIDEC-2010BI037882

PATIENT
  Age: 52 Year
  Sex: Male
  Weight: 102 kg

DRUGS (4)
  1. TYSABRI [Suspect]
     Indication: MULTIPLE SCLEROSIS
     Route: 042
     Dates: start: 20100316
  2. NEURONTIN [Concomitant]
     Indication: NEUROPATHY PERIPHERAL
     Route: 048
     Dates: start: 20090101
  3. NEURONTIN [Concomitant]
     Route: 048
     Dates: start: 20090101
  4. NEXIUM [Concomitant]
     Indication: CROHN'S DISEASE
     Route: 048

REACTIONS (14)
  - ASTHENIA [None]
  - CANDIDIASIS [None]
  - HEMICEPHALALGIA [None]
  - HERPES ZOSTER [None]
  - JOINT SWELLING [None]
  - LOSS OF CONSCIOUSNESS [None]
  - MENTAL IMPAIRMENT [None]
  - MULTIPLE SCLEROSIS RELAPSE [None]
  - NAIL INFECTION [None]
  - PNEUMONIA STAPHYLOCOCCAL [None]
  - POLYP [None]
  - RESPIRATORY ARREST [None]
  - SWELLING [None]
  - TYPE 2 DIABETES MELLITUS [None]
